FAERS Safety Report 8825579 (Version 1)
Quarter: 2012Q4

REPORT INFORMATION
  Report Type: Report from Study
  Country: NL (occurrence: NL)
  Receive Date: 20121004
  Receipt Date: 20121004
  Transmission Date: 20130627
  Serious: Yes (Hospitalization)
  Sender: FDA-Public Use
  Company Number: NL-PFIZER INC-2012240002

PATIENT

DRUGS (1)
  1. CYTARABINE [Suspect]
     Indication: NEOPLASM MALIGNANT

REACTIONS (3)
  - Thrombocytopenia [Unknown]
  - Petechiae [Unknown]
  - Off label use [Unknown]
